FAERS Safety Report 7411893-8 (Version None)
Quarter: 2011Q2

REPORT INFORMATION
  Report Type: 
  Country: None (occurrence: None)
  Receive Date: 20110405
  Receipt Date: 20110324
  Transmission Date: 20111010
  Serious: Yes (Other)
  Sender: FDA-Public Use
  Company Number: DSJ-2011-05878

PATIENT
  Age: 7 Decade
  Sex: Male

DRUGS (3)
  1. OLMESARTAN MEDOXOMIL [Suspect]
     Indication: HYPERTENSION
     Dosage: 40 MG, PER ORAL
     Route: 048
     Dates: start: 20110101
  2. GASTROINTESTINAL AGENTS) [INGREDIENT UNKNOWN] [Concomitant]
  3. PLETAAL (CILOSTAZOL) (CILOSTAZOL) [Concomitant]

REACTIONS (2)
  - CONDITION AGGRAVATED [None]
  - THROMBOCYTOPENIA [None]
